FAERS Safety Report 21846002 (Version 2)
Quarter: 2023Q1

REPORT INFORMATION
  Report Type: Spontaneous
  Country: US (occurrence: US)
  Receive Date: 20230111
  Receipt Date: 20230223
  Transmission Date: 20230417
  Serious: No
  Sender: FDA-Public Use
  Company Number: US-SA-SAC20230110000293

PATIENT
  Age: 52 Year
  Sex: Female

DRUGS (3)
  1. DUPIXENT [Suspect]
     Active Substance: DUPILUMAB
     Indication: Asthma
     Dosage: 300 MG, QOW
     Route: 058
     Dates: start: 20220205, end: 20230104
  2. ALBUTEROL [Concomitant]
     Active Substance: ALBUTEROL
     Dosage: UNK
  3. BENADRYL [Concomitant]
     Active Substance: DIPHENHYDRAMINE HYDROCHLORIDE
     Dosage: UNK

REACTIONS (4)
  - Skin irritation [Unknown]
  - Injection site scar [Unknown]
  - Injection site exfoliation [Unknown]
  - Rash macular [Unknown]
